FAERS Safety Report 5070064-3 (Version None)
Quarter: 2006Q3

REPORT INFORMATION
  Report Type: 
  Country: None (occurrence: None)
  Receive Date: 20060731
  Receipt Date: 20060724
  Transmission Date: 20061208
  Serious: Yes (Disabling, Other)
  Sender: FDA-Public Use
  Company Number: 2006090849

PATIENT
  Age: 85 Year
  Sex: Female

DRUGS (1)
  1. PREGABALIN (PREGABALIN) [Suspect]
     Indication: NEURALGIA
     Dosage: 150 MG (75 MG 2 IN 1 D) ORAL
     Route: 048
     Dates: end: 20060701

REACTIONS (5)
  - DISORIENTATION [None]
  - DIZZINESS [None]
  - GAIT DISTURBANCE [None]
  - PSYCHOTIC DISORDER [None]
  - SOMNOLENCE [None]
